FAERS Safety Report 10061007 (Version 2)
Quarter: 2014Q2

REPORT INFORMATION
  Report Type: Spontaneous
  Country: DE (occurrence: DE)
  Receive Date: 20140405
  Receipt Date: 20140523
  Transmission Date: 20141212
  Serious: Yes (Other)
  Sender: FDA-Public Use
  Company Number: DE-ROCHE-1377988

PATIENT
  Age: 80 Year
  Sex: Female

DRUGS (4)
  1. LUCENTIS [Suspect]
     Indication: PRODUCT USED FOR UNKNOWN INDICATION
     Dosage: LEFT EYE
     Route: 050
     Dates: start: 2007
  2. LUCENTIS [Suspect]
     Dosage: RIGHT EYE
     Route: 050
     Dates: start: 2010
  3. LUCENTIS [Suspect]
     Route: 050
     Dates: start: 20140117
  4. LUCENTIS [Suspect]
     Route: 050
     Dates: start: 20140214

REACTIONS (2)
  - Cerebrovascular accident [Recovered/Resolved]
  - Visual acuity reduced [Unknown]
